FAERS Safety Report 10811996 (Version 3)
Quarter: 2015Q4

REPORT INFORMATION
  Report Type: Report from Study
  Country: US (occurrence: US)
  Receive Date: 20150217
  Receipt Date: 20151030
  Transmission Date: 20160304
  Serious: No
  Sender: FDA-Public Use
  Company Number: US-AMGEN-USASL2015013412

PATIENT
  Age: 70 Year
  Sex: Female

DRUGS (1)
  1. ENBREL [Suspect]
     Active Substance: ETANERCEPT
     Indication: BEHCET^S SYNDROME
     Dosage: 50 MG, QWK
     Route: 058
     Dates: start: 1994

REACTIONS (9)
  - Headache [Unknown]
  - Injection site reaction [Unknown]
  - Joint injury [Unknown]
  - Head discomfort [Unknown]
  - Off label use [Unknown]
  - Injection site pruritus [Unknown]
  - Injection site erythema [Unknown]
  - Osteoarthritis [Unknown]
  - Blood glucose abnormal [Unknown]

NARRATIVE: CASE EVENT DATE: 2005
